FAERS Safety Report 4975541-9 (Version None)
Quarter: 2006Q1

REPORT INFORMATION
  Report Type: 
  Country: None (occurrence: None)
  Receive Date: 20060223
  Receipt Date: 20051130
  Transmission Date: 20060701
  Serious: No
  Sender: FDA-Public Use
  Company Number: SUSI-2005-00862

PATIENT
  Age: 38 Year
  Sex: Male
  Weight: 68 kg

DRUGS (4)
  1. FOSRENOL [Suspect]
     Indication: HYPOPHOSPHATAEMIA
     Dosage: 500 MG, UP TO 6 TIMES A DAY,
     Dates: start: 20050501
  2. NORVASC [Concomitant]
  3. AVAPRO [Concomitant]
  4. TOPROL-XL [Concomitant]

REACTIONS (2)
  - AMMONIA INCREASED [None]
  - CONSTIPATION [None]
